FAERS Safety Report 21632270 (Version 1)
Quarter: 2022Q4

REPORT INFORMATION
  Report Type: Spontaneous
  Country: TR (occurrence: TR)
  Receive Date: 20221123
  Receipt Date: 20221123
  Transmission Date: 20230112
  Serious: Yes (Death, Hospitalization, Other)
  Sender: FDA-Public Use
  Company Number: TR-ALKEM LABORATORIES LIMITED-TR-ALKEM-2022-12528

PATIENT
  Sex: Female

DRUGS (1)
  1. COLCHICINE [Suspect]
     Active Substance: COLCHICINE
     Indication: Accident
     Dosage: UNK
     Route: 048

REACTIONS (8)
  - Cardiac arrest [Fatal]
  - Accidental exposure to product by child [Fatal]
  - Toxicity to various agents [Fatal]
  - Overdose [Fatal]
  - Rhabdomyolysis [Unknown]
  - Tachycardia [Unknown]
  - Hepatic function abnormal [Unknown]
  - Leukocytosis [Unknown]
